FAERS Safety Report 7861582 (Version 2)
Quarter: 2013Q2

REPORT INFORMATION
  Report Type: Spontaneous
  Country: CO (occurrence: CO)
  Receive Date: 20110318
  Receipt Date: 20130422
  Transmission Date: 20140414
  Serious: Yes (Death, Hospitalization, Other)
  Sender: FDA-Public Use
  Company Number: CO-RANBAXY-2011RR-42862

PATIENT
  Age: 6 Month
  Sex: Male

DRUGS (2)
  1. IBUPROFEN [Suspect]
     Indication: OTITIS MEDIA ACUTE
     Dosage: UNK
     Route: 065
  2. AMOXICILLIN [Concomitant]
     Indication: OTITIS MEDIA ACUTE
     Dosage: UNK
     Route: 065

REACTIONS (5)
  - Necrotising fasciitis [Fatal]
  - Septic shock [Fatal]
  - Respiratory failure [Fatal]
  - Acute respiratory distress syndrome [Fatal]
  - Pneumonia [Fatal]
